FAERS Safety Report 5606158-0 (Version None)
Quarter: 2008Q1

REPORT INFORMATION
  Report Type: 
  Country: None (occurrence: None)
  Receive Date: 20080129
  Receipt Date: 20070131
  Transmission Date: 20080703
  Serious: No
  Sender: FDA-Public Use
  Company Number: A0637797A

PATIENT
  Sex: Female

DRUGS (1)
  1. MEPRON [Suspect]
     Dosage: 1500MG PER DAY
     Route: 048
     Dates: start: 20060401

REACTIONS (1)
  - TINNITUS [None]
